FAERS Safety Report 18660123 (Version 1)
Quarter: 2020Q4

REPORT INFORMATION
  Report Type: Spontaneous
  Country: US (occurrence: US)
  Receive Date: 20201223
  Receipt Date: 20201223
  Transmission Date: 20210114
  Serious: Yes (Other)
  Sender: FDA-Public Use
  Company Number: None

PATIENT
  Age: 16 Week
  Sex: Female
  Weight: 11 kg

DRUGS (1)
  1. GENOSYL [Suspect]
     Active Substance: NITRIC OXIDE

REACTIONS (3)
  - Device malfunction [None]
  - Incorrect dose administered [None]
  - Blood methaemoglobin present [None]

NARRATIVE: CASE EVENT DATE: 202012
